FAERS Safety Report 21747976 (Version 1)
Quarter: 2022Q4

REPORT INFORMATION
  Report Type: Spontaneous
  Country: US (occurrence: None)
  Receive Date: 20221217
  Receipt Date: 20221217
  Transmission Date: 20230112
  Serious: Yes (Hospitalization)
  Sender: FDA-Public Use
  Company Number: None

PATIENT
  Age: 45 Year
  Sex: Female
  Weight: 64.35 kg

DRUGS (6)
  1. NITROFURANTOIN MONOHYDRATE MACROCRYSTALS [Suspect]
     Active Substance: NITROFURANTOIN\NITROFURANTOIN MONOHYDRATE
     Indication: Urinary tract infection
     Dosage: OTHER QUANTITY : 1 CAPSULE(S);?FREQUENCY : TWICE A DAY;?
     Route: 048
     Dates: start: 20221213, end: 20221214
  2. Sertraline 100 mg po qd [Concomitant]
  3. Trazadone 75 mg po qhs [Concomitant]
  4. cetirizine 10 mg po qd [Concomitant]
  5. FLONASE [Concomitant]
     Active Substance: FLUTICASONE PROPIONATE
  6. Acetaminophen 650 mg for pain prn [Concomitant]

REACTIONS (12)
  - Nausea [None]
  - Abdominal pain upper [None]
  - Crying [None]
  - Gastrointestinal inflammation [None]
  - Gastritis [None]
  - Intra-abdominal fluid collection [None]
  - White blood cell disorder [None]
  - Blood pressure increased [None]
  - Hypotension [None]
  - Gastritis [None]
  - Duodenitis [None]
  - Enteritis [None]

NARRATIVE: CASE EVENT DATE: 20221214
